FAERS Safety Report 12167567 (Version 2)
Quarter: 2016Q1

REPORT INFORMATION
  Report Type: Report from Study
  Country: BR (occurrence: BR)
  Receive Date: 20160310
  Receipt Date: 20160331
  Transmission Date: 20160526
  Serious: Yes (Congenital Anomaly, Other)
  Sender: FDA-Public Use
  Company Number: BR-SUN PHARMACEUTICAL INDUSTRIES LTD-2016RR-111779

PATIENT

DRUGS (1)
  1. ACETYLSALICYLIC ACID [Suspect]
     Active Substance: ASPIRIN
     Indication: INFLUENZA
     Dosage: 500 MG, DAILY
     Route: 064

REACTIONS (3)
  - Persistent foetal circulation [Recovered/Resolved]
  - Foetal exposure during pregnancy [Unknown]
  - Ductus arteriosus premature closure [Unknown]
